FAERS Safety Report 7021930-0 (Version None)
Quarter: 2010Q3

REPORT INFORMATION
  Report Type: 
  Country: None (occurrence: None)
  Receive Date: 20100930
  Receipt Date: 20100323
  Transmission Date: 20110219
  Serious: Yes (Hospitalization, Other)
  Sender: FDA-Public Use
  Company Number: US-BAYER-200942167NA

PATIENT
  Age: 21 Year
  Sex: Female
  Weight: 55 kg

DRUGS (7)
  1. YAZ [Suspect]
     Indication: CONTRACEPTION
     Route: 048
     Dates: end: 20090401
  2. YAZ [Suspect]
     Dates: start: 20071204, end: 20080501
  3. YASMIN [Suspect]
     Indication: PRODUCT USED FOR UNKNOWN INDICATION
     Dates: start: 20080502, end: 20081101
  4. OCELLA [Suspect]
     Indication: CONTRACEPTION
     Dates: start: 20090401
  5. OCELLA [Suspect]
     Dates: start: 20081101
  6. ZITHROMAX [Concomitant]
  7. ZYRTEC [Concomitant]
     Indication: UPPER RESPIRATORY TRACT INFECTION

REACTIONS (7)
  - ABDOMINAL DISTENSION [None]
  - ABDOMINAL PAIN UPPER [None]
  - BACK PAIN [None]
  - CHOLECYSTITIS [None]
  - CHOLELITHIASIS [None]
  - MUSCULOSKELETAL PAIN [None]
  - NAUSEA [None]
